FAERS Safety Report 14972201 (Version 3)
Quarter: 2018Q2

REPORT INFORMATION
  Report Type: Spontaneous
  Country: BR (occurrence: BR)
  Receive Date: 20180605
  Receipt Date: 20180622
  Transmission Date: 20180711
  Serious: Yes (Death, Hospitalization, Other)
  Sender: FDA-Public Use
  Company Number: BR-B.I. PHARMACEUTICALS,INC./RIDGEFIELD-2018-BI-029228

PATIENT
  Age: 97 Year
  Sex: Male
  Weight: 100 kg

DRUGS (6)
  1. MECLIN [Concomitant]
     Indication: PROMOTION OF PERIPHERAL CIRCULATION
     Route: 048
     Dates: end: 20180525
  2. QUETIAPINA [Concomitant]
     Active Substance: QUETIAPINE
     Indication: HALLUCINATION
     Dosage: DOSE: 25 MG
     Route: 048
     Dates: end: 20180525
  3. PROPILRACIL [Concomitant]
     Indication: THYROID DISORDER
     Route: 048
     Dates: end: 20180525
  4. RISPERIDONA [Concomitant]
     Active Substance: RISPERIDONE
     Indication: HALLUCINATION
     Route: 048
     Dates: end: 20180525
  5. CARVEDILO [Concomitant]
     Active Substance: CARVEDILOL
     Indication: ARRHYTHMIA
     Dosage: UNIT DOSE : 3/125 MILLIGRAM DAILY DOSE: 6/250MILLIGRAM
     Route: 048
     Dates: end: 20180525
  6. PRADAXA [Suspect]
     Active Substance: DABIGATRAN ETEXILATE MESYLATE
     Indication: THROMBOSIS PROPHYLAXIS
     Route: 048
     Dates: start: 2015, end: 20180525

REACTIONS (3)
  - Urosepsis [Fatal]
  - Hypoxia [Fatal]
  - Aphasia [Not Recovered/Not Resolved]

NARRATIVE: CASE EVENT DATE: 20180525
